FAERS Safety Report 21816203 (Version 3)
Quarter: 2023Q1

REPORT INFORMATION
  Report Type: Report from Study
  Country: DE (occurrence: DE)
  Receive Date: 20230104
  Receipt Date: 20230130
  Transmission Date: 20230417
  Serious: Yes (Death, Hospitalization, Other)
  Sender: FDA-Public Use
  Company Number: DE-002147023-NVSC2022DE245123

PATIENT
  Sex: Female

DRUGS (16)
  1. LETROZOLE [Suspect]
     Active Substance: LETROZOLE
     Indication: Product used for unknown indication
     Dosage: 2.5 MILLIGRAM, QD, 2.5 MG, QD
     Route: 048
     Dates: start: 20180526, end: 20211218
  2. AFINITOR [Suspect]
     Active Substance: EVEROLIMUS
     Indication: Breast cancer metastatic
     Dosage: 10 MILLIGRAM, QD, 10 MG, QD
     Route: 048
     Dates: start: 20220221, end: 20220809
  3. KISQALI [Suspect]
     Active Substance: RIBOCICLIB
     Indication: Breast cancer metastatic
     Dosage: 400 MILLIGRAM, QD, QD (REGIMEN 21 DAYS IN
     Route: 048
     Dates: start: 20211128, end: 20211218
  4. KISQALI [Suspect]
     Active Substance: RIBOCICLIB
     Dosage: 600 MILLIGRAM, QD, QD ONCE DAILY / 2 WEEK
     Route: 048
     Dates: start: 20180923, end: 20180923
  5. KISQALI [Suspect]
     Active Substance: RIBOCICLIB
     Dosage: 600 MILLIGRAM, QD, ONCE DAILY / 2 WEEK
     Route: 048
     Dates: start: 20180826, end: 20180915
  6. KISQALI [Suspect]
     Active Substance: RIBOCICLIB
     Dosage: 400 MG, QD, REGIMEN 21 DAY
     Route: 048
     Dates: start: 20181021, end: 20211112
  7. KISQALI [Suspect]
     Active Substance: RIBOCICLIB
     Dosage: 600 MG, QD ONCE DAILY / 2 WEEKS
     Route: 048
     Dates: start: 20180722, end: 20180811
  8. KISQALI [Suspect]
     Active Substance: RIBOCICLIB
     Dosage: 600 MG, QD ONCE DAILY / 2 WEEKS/ THEN 1 WEEK PAUSE
     Route: 048
     Dates: start: 20180624, end: 20180714
  9. KISQALI [Suspect]
     Active Substance: RIBOCICLIB
     Dosage: 600 MG, QD ONCE DAILY / 2 WEEKS/ THEN 1 WEEK PAU
     Route: 048
     Dates: start: 20180513, end: 20180529
  10. KISQALI [Suspect]
     Active Substance: RIBOCICLIB
     Dosage: 600 MG, QD ONCE DAILY / 2 W
     Route: 048
     Dates: start: 20180603, end: 20180616
  11. KISQALI [Suspect]
     Active Substance: RIBOCICLIB
     Dosage: 400 MG, QD ONCE DAILY / 2 WEEK
     Route: 048
     Dates: start: 20180924, end: 20181013
  12. PANTOPRAZOLE [Concomitant]
     Active Substance: PANTOPRAZOLE
     Indication: Prophylaxis
     Dosage: UNK
     Route: 065
     Dates: start: 201712
  13. ALBUTEROL [Concomitant]
     Active Substance: ALBUTEROL
     Indication: Product used for unknown indication
     Dosage: UNK, QD,  TID (NEBULIZER)
     Route: 065
  14. BISOPROLOL [Concomitant]
     Active Substance: BISOPROLOL
     Indication: Cardiac failure
     Dosage: UNK
     Route: 065
     Dates: start: 2016
  15. TORSEMIDE [Concomitant]
     Active Substance: TORSEMIDE
     Indication: Polyuria
     Dosage: UNK
     Route: 048
     Dates: start: 2013
  16. RAMIPRIL [Concomitant]
     Active Substance: RAMIPRIL
     Indication: Hypertension
     Dosage: UNK
     Route: 065
     Dates: start: 2013

REACTIONS (17)
  - Death [Fatal]
  - Ascites [Not Recovered/Not Resolved]
  - General physical health deterioration [Not Recovered/Not Resolved]
  - Mitral valve incompetence [Unknown]
  - Pneumonia [Unknown]
  - Fluid retention [Recovering/Resolving]
  - Erysipelas [Recovering/Resolving]
  - Erythema [Recovering/Resolving]
  - Pain in extremity [Recovering/Resolving]
  - Decreased appetite [Not Recovered/Not Resolved]
  - Dyspnoea [Not Recovered/Not Resolved]
  - Urinary tract disorder [Unknown]
  - Haematoma [Unknown]
  - Pleural effusion [Unknown]
  - Tachycardia paroxysmal [Unknown]
  - Cholelithiasis [Unknown]
  - Depression [Unknown]

NARRATIVE: CASE EVENT DATE: 20220601
